FAERS Safety Report 7987818-3 (Version None)
Quarter: 2011Q4

REPORT INFORMATION
  Report Type: 
  Country: None (occurrence: None)
  Receive Date: 20111216
  Receipt Date: 20110505
  Transmission Date: 20120403
  Serious: No
  Sender: FDA-Public Use
  Company Number: US-BRISTOL-MYERS SQUIBB COMPANY-15720329

PATIENT
  Age: 24 Year
  Sex: Female

DRUGS (2)
  1. ABILIFY [Suspect]
     Indication: AFFECTIVE DISORDER
     Dates: start: 20110430
  2. ABILIFY [Suspect]
     Indication: HALLUCINATION, AUDITORY
     Dates: start: 20110430

REACTIONS (2)
  - THINKING ABNORMAL [None]
  - SOMNOLENCE [None]
